FAERS Safety Report 21740074 (Version 1)
Quarter: 2022Q4

REPORT INFORMATION
  Report Type: Spontaneous
  Country: US (occurrence: US)
  Receive Date: 20221216
  Receipt Date: 20221216
  Transmission Date: 20230113
  Serious: No
  Sender: FDA-Public Use
  Company Number: US-DSJP-DSU-2022-144894AA

PATIENT
  Age: 39 Year
  Sex: Female

DRUGS (1)
  1. TURALIO [Suspect]
     Active Substance: PEXIDARTINIB HYDROCHLORIDE
     Dosage: UNK
     Route: 065

REACTIONS (1)
  - Discontinued product administered [Unknown]

NARRATIVE: CASE EVENT DATE: 20220901
